FAERS Safety Report 8244546-7 (Version None)
Quarter: 2012Q1

REPORT INFORMATION
  Report Type: 
  Country: None (occurrence: None)
  Receive Date: 20120329
  Receipt Date: 20120320
  Transmission Date: 20120608
  Serious: Yes (Hospitalization)
  Sender: FDA-Public Use
  Company Number: FR-JNJFOC-20120309732

PATIENT
  Age: 9 Year
  Sex: Male
  Weight: 30 kg

DRUGS (4)
  1. METHYLPHENIDATE [Suspect]
     Indication: PSYCHOMOTOR HYPERACTIVITY
     Route: 048
  2. METHYLPHENIDATE [Suspect]
     Indication: AGGRESSION
     Route: 048
  3. RISPERIDONE [Suspect]
     Indication: AGGRESSION
     Route: 065
  4. RISPERIDONE [Suspect]
     Indication: PSYCHOMOTOR HYPERACTIVITY
     Route: 065

REACTIONS (1)
  - HYPERTHERMIA [None]
